FAERS Safety Report 21754015 (Version 1)
Quarter: 2022Q4

REPORT INFORMATION
  Report Type: Spontaneous
  Country: US (occurrence: US)
  Receive Date: 20221220
  Receipt Date: 20221220
  Transmission Date: 20230113
  Serious: No
  Sender: FDA-Public Use
  Company Number: US-TEVA-2022-US-2835994

PATIENT
  Age: 67 Year
  Sex: Female

DRUGS (2)
  1. LIDOCAINE [Suspect]
     Active Substance: LIDOCAINE
     Indication: Pain
     Dosage: 5%
     Route: 062
     Dates: start: 2010
  2. LIDOCAINE [Suspect]
     Active Substance: LIDOCAINE
     Indication: Spinal stenosis

REACTIONS (3)
  - Depressed mood [Unknown]
  - Drug ineffective [Unknown]
  - Product adhesion issue [Unknown]

NARRATIVE: CASE EVENT DATE: 20221201
